FAERS Safety Report 5228741-7 (Version None)
Quarter: 2007Q1

REPORT INFORMATION
  Report Type: 
  Country: None (occurrence: None)
  Receive Date: 20070205
  Receipt Date: 20070125
  Transmission Date: 20070707
  Serious: Yes (Other)
  Sender: FDA-Public Use
  Company Number: GB-JNJFOC-20070106514

PATIENT
  Age: 49 Year
  Sex: Female
  Weight: 50 kg

DRUGS (4)
  1. REMICADE [Suspect]
     Indication: CROHN'S DISEASE
     Route: 042
  2. CODEINE [Concomitant]
     Indication: DIARRHOEA
     Route: 048
  3. FOLIC ACID [Concomitant]
     Indication: CROHN'S DISEASE
     Route: 048
  4. VITAMIN B-12 [Concomitant]
     Indication: CROHN'S DISEASE
     Route: 030

REACTIONS (1)
  - HEARING IMPAIRED [None]
